FAERS Safety Report 5872507-1 (Version None)
Quarter: 2008Q3

REPORT INFORMATION
  Report Type: 
  Country: None (occurrence: None)
  Receive Date: 20080905
  Receipt Date: 20080831
  Transmission Date: 20090109
  Serious: Yes (Other)
  Sender: FDA-Public Use
  Company Number: US-JNJCH-2008022566

PATIENT
  Age: 30 Month
  Sex: Female
  Weight: 10.4 kg

DRUGS (2)
  1. CHILDREN'S ZYRTEC ALLERGY SYRUP [Suspect]
     Indication: HYPERSENSITIVITY
     Dosage: TEXT:1MG DAILY
     Route: 048
  2. MONTELUKAST SODIUM [Concomitant]
     Indication: DRUG USE FOR UNKNOWN INDICATION
     Dosage: TEXT:DAILY
     Route: 065

REACTIONS (3)
  - ASTHENIA [None]
  - LETHARGY [None]
  - SOMNOLENCE [None]
